FAERS Safety Report 13538109 (Version 2)
Quarter: 2017Q2

REPORT INFORMATION
  Report Type: Report from Study
  Country: AU (occurrence: AU)
  Receive Date: 20170512
  Receipt Date: 20170531
  Transmission Date: 20170830
  Serious: Yes (Hospitalization)
  Sender: FDA-Public Use
  Company Number: AU-BIOGEN-2016BI00234700

PATIENT
  Age: 58 Year
  Sex: Male

DRUGS (7)
  1. PLEGRIDY [Suspect]
     Active Substance: PEGINTERFERON BETA-1A
     Route: 058
     Dates: start: 20160429
  2. PLEGRIDY [Suspect]
     Active Substance: PEGINTERFERON BETA-1A
     Route: 058
  3. PLEGRIDY [Suspect]
     Active Substance: PEGINTERFERON BETA-1A
     Route: 058
     Dates: start: 20160513
  4. PLEGRIDY [Suspect]
     Active Substance: PEGINTERFERON BETA-1A
     Route: 058
     Dates: start: 201605
  5. PLEGRIDY [Suspect]
     Active Substance: PEGINTERFERON BETA-1A
     Indication: MULTIPLE SCLEROSIS
     Route: 058
     Dates: start: 20160429
  6. PLEGRIDY [Suspect]
     Active Substance: PEGINTERFERON BETA-1A
     Route: 058
  7. PLEGRIDY [Suspect]
     Active Substance: PEGINTERFERON BETA-1A
     Route: 058
     Dates: start: 20160429

REACTIONS (65)
  - Encephalitis [Unknown]
  - Hyperhidrosis [Unknown]
  - Liver disorder [Unknown]
  - Heart rate increased [Unknown]
  - Dyspnoea [Unknown]
  - Body temperature fluctuation [Recovered/Resolved]
  - Pain [Unknown]
  - Injection site rash [Recovered/Resolved]
  - Injection site erythema [Recovered/Resolved]
  - Liver function test increased [Unknown]
  - Nausea [Recovered/Resolved]
  - Sleep disorder [Recovered/Resolved]
  - Dizziness [Recovered/Resolved]
  - Mental impairment [Unknown]
  - Feeling abnormal [Recovered/Resolved]
  - Paraesthesia [Recovered/Resolved]
  - Amnesia [Not Recovered/Not Resolved]
  - Muscle spasms [Unknown]
  - Injection site dryness [Unknown]
  - Anal incontinence [Recovered/Resolved]
  - Rash [Recovered/Resolved]
  - Skin papilloma [Not Recovered/Not Resolved]
  - Spinal pain [Recovered/Resolved]
  - Decreased interest [Unknown]
  - Temperature intolerance [Unknown]
  - Cough [Unknown]
  - Peripheral coldness [Recovered/Resolved]
  - Feeling cold [Recovered/Resolved]
  - Anxiety [Recovered/Resolved]
  - Blood pressure increased [Unknown]
  - Seasonal allergy [Recovered/Resolved]
  - Multiple sclerosis [Recovered/Resolved]
  - Injection site bruising [Unknown]
  - Depressed mood [Unknown]
  - Gastroenteritis viral [Unknown]
  - Lethargy [Unknown]
  - Injection site pruritus [Recovered/Resolved]
  - Injection site warmth [Unknown]
  - Headache [Recovered/Resolved]
  - Upper-airway cough syndrome [Recovered/Resolved]
  - Cutaneous symptom [Unknown]
  - Irritability [Unknown]
  - Night sweats [Unknown]
  - Fatigue [Unknown]
  - Constipation [Unknown]
  - Lacrimation increased [Unknown]
  - Sensory disturbance [Unknown]
  - Flatulence [Unknown]
  - Tremor [Unknown]
  - Sinus disorder [Unknown]
  - Hyperaesthesia [Unknown]
  - Arthralgia [Unknown]
  - Myalgia [Not Recovered/Not Resolved]
  - Body temperature increased [Recovered/Resolved]
  - Body temperature decreased [Unknown]
  - Depression [Unknown]
  - Asthenia [Recovered/Resolved]
  - Injection site pain [Recovered/Resolved]
  - Vomiting [Recovered/Resolved]
  - Pain in extremity [Recovered/Resolved]
  - Influenza [Recovered/Resolved]
  - Disturbance in attention [Recovered/Resolved]
  - Gait disturbance [Not Recovered/Not Resolved]
  - Vertigo [Recovered/Resolved]
  - Chills [Not Recovered/Not Resolved]

NARRATIVE: CASE EVENT DATE: 20160429
